FAERS Safety Report 24439336 (Version 2)
Quarter: 2024Q4

REPORT INFORMATION
  Report Type: Spontaneous
  Country: SA (occurrence: SA)
  Receive Date: 20241015
  Receipt Date: 20241126
  Transmission Date: 20250115
  Serious: Yes (Other)
  Sender: NOVARTIS
  Company Number: SA-002147023-NVSC2024SA201063

PATIENT
  Age: 31 Year
  Sex: Male

DRUGS (2)
  1. LEQVIO [Suspect]
     Active Substance: INCLISIRAN SODIUM
     Indication: Type IIa hyperlipidaemia
     Dosage: 284 MG (INITIALLY THEN AFTER 3 MONTHS THEN EVERY 6 MONTHS) (FIRST INJECTION)
     Route: 058
     Dates: start: 202406
  2. LEQVIO [Suspect]
     Active Substance: INCLISIRAN SODIUM
     Dosage: 284 MG (INITIALLY THEN AFTER 3 MONTHS THEN EVERY 6 MONTHS) (SECOND INJECTION)
     Route: 058
     Dates: start: 202410

REACTIONS (1)
  - Lipids increased [Unknown]

NARRATIVE: CASE EVENT DATE: 20240601
